FAERS Safety Report 4727364-3 (Version None)
Quarter: 2005Q3

REPORT INFORMATION
  Report Type: 
  Country: None (occurrence: None)
  Receive Date: 20050727
  Receipt Date: 20050727
  Transmission Date: 20060218
  Serious: Yes (Hospitalization)
  Sender: FDA-Public Use
  Company Number: None

PATIENT
  Age: 51 Year
  Sex: Male
  Weight: 86.1834 kg

DRUGS (12)
  1. HEPARIN [Suspect]
     Indication: CEREBRAL INFARCTION
     Dosage: 1000 UNITS/HR NO BOLUS
     Dates: start: 20050419, end: 20050421
  2. WARFARIN [Suspect]
     Indication: CEREBRAL INFARCTION
     Dosage: 75 MG PO (ONE ONLY)
     Route: 048
     Dates: start: 20050420
  3. COSOPT [Concomitant]
  4. ATENOLOL [Concomitant]
  5. ACIPHEX [Concomitant]
  6. SOTALOL HCL [Concomitant]
  7. POTASSIUM CHLORIDE [Concomitant]
  8. PHENERGAN [Concomitant]
  9. TYLENOL (CAPLET) [Concomitant]
  10. AMBIEN [Concomitant]
  11. TORADOL [Concomitant]
  12. ASPIRIN [Concomitant]

REACTIONS (6)
  - ACTIVATED PARTIAL THROMBOPLASTIN TIME PROLONGED [None]
  - CEREBRAL HAEMATOMA [None]
  - HAEMATOMA [None]
  - HEADACHE [None]
  - INTERNATIONAL NORMALISED RATIO DECREASED [None]
  - NAUSEA [None]
